FAERS Safety Report 7786754-5 (Version None)
Quarter: 2011Q3

REPORT INFORMATION
  Report Type: 
  Country: None (occurrence: None)
  Receive Date: 20110929
  Receipt Date: 20110923
  Transmission Date: 20111222
  Serious: Yes (Hospitalization)
  Sender: FDA-Public Use
  Company Number: FR-PFIZER INC-2011230856

PATIENT
  Age: 87 Year
  Sex: Male

DRUGS (13)
  1. PANTOPRAZOLE [Suspect]
     Indication: PROPHYLAXIS
     Dosage: 20 MG, DAILY
     Route: 013
     Dates: start: 20110124, end: 20110206
  2. HEPARIN SODIUM [Suspect]
     Indication: PROPHYLAXIS
     Dosage: 1000 IU, SINGLE
     Route: 042
     Dates: start: 20110125, end: 20110125
  3. ALDALIX [Concomitant]
     Dosage: 50
  4. ENDOTELON [Concomitant]
     Dosage: 150
  5. NITROGLYCERIN [Concomitant]
     Dosage: 50, AS NEEDED
  6. IMERON [Suspect]
     Indication: ARTERIOGRAM CORONARY
     Dosage: 150 ML, 1X/DAY
     Route: 042
     Dates: start: 20110125, end: 20110125
  7. PLAVIX [Suspect]
     Indication: PROPHYLAXIS
     Dosage: 4 DF, 1X/DAY
     Route: 048
     Dates: start: 20110125, end: 20110125
  8. ASPIRIN [Suspect]
     Indication: ARTERIOSCLEROSIS CORONARY ARTERY
     Dosage: 1 DF, UNK
     Route: 048
     Dates: start: 20110124
  9. PREVISCAN [Concomitant]
  10. PROSCAR [Concomitant]
  11. CORVASAL [Concomitant]
     Dosage: 2 MG, UNK
  12. TENORMIN [Concomitant]
     Dosage: UNK
  13. DIGOXIN [Concomitant]

REACTIONS (1)
  - FIXED ERUPTION [None]
